FAERS Safety Report 18328944 (Version 1)
Quarter: 2020Q3

REPORT INFORMATION
  Report Type: Spontaneous
  Country: IT (occurrence: IT)
  Receive Date: 20200930
  Receipt Date: 20200930
  Transmission Date: 20201103
  Serious: Yes (Death, Other)
  Sender: FDA-Public Use
  Company Number: IT-CELLTRION INC.-2020IT027844

PATIENT

DRUGS (6)
  1. TRASTUZUMAB (UNKNOWN) [Suspect]
     Active Substance: TRASTUZUMAB
     Dosage: 6 MG/KG (3?WEEKLY)
  2. TRASTUZUMAB (UNKNOWN) [Suspect]
     Active Substance: TRASTUZUMAB
     Dosage: 2 MG/KG (FOURTH?LINE CT)
  3. VINORELBINE [Suspect]
     Active Substance: VINORELBINE TARTRATE
     Indication: SALIVARY GLAND CANCER
     Dosage: 25 MG/M2 ON DAYS 1 AND 8 OF 21?DAY CYLCE
  4. PACLITAXEL. [Suspect]
     Active Substance: PACLITAXEL
     Indication: SALIVARY GLAND CANCER
     Dosage: 80 MG/M2 (FOURTH?LINE CT)
  5. TRASTUZUMAB (UNKNOWN) [Suspect]
     Active Substance: TRASTUZUMAB
     Indication: SALIVARY GLAND CANCER
     Dosage: 4 MG/KG (FOURTH?LINE CT, LOADING DOSE)
  6. CARBOPLATIN. [Suspect]
     Active Substance: CARBOPLATIN
     Indication: SALIVARY GLAND CANCER
     Dosage: AUC2, WEEKLY (FOURTH?LINE CT)

REACTIONS (6)
  - Febrile neutropenia [Recovered/Resolved]
  - Pneumonia [Recovered/Resolved]
  - Streptococcal endocarditis [Unknown]
  - Death [Fatal]
  - Ejection fraction decreased [Unknown]
  - Off label use [Unknown]
